FAERS Safety Report 11585253 (Version 1)
Quarter: 2015Q4

REPORT INFORMATION
  Report Type: Spontaneous
  Country: US (occurrence: US)
  Receive Date: 20151001
  Receipt Date: 20151001
  Transmission Date: 20160304
  Serious: No
  Sender: FDA-Public Use
  Company Number: US-ASTRAZENECA-2015SE91401

PATIENT
  Sex: Female
  Weight: 63.5 kg

DRUGS (2)
  1. BYETTA [Suspect]
     Active Substance: EXENATIDE
     Indication: INSULIN RESISTANCE
     Route: 058
     Dates: start: 2010, end: 20150918
  2. INVOKANA [Concomitant]
     Active Substance: CANAGLIFLOZIN
     Indication: INSULIN RESISTANCE

REACTIONS (4)
  - Drug dose omission [Unknown]
  - Underdose [Unknown]
  - Nervousness [Recovered/Resolved]
  - Product quality issue [Unknown]

NARRATIVE: CASE EVENT DATE: 20150918
